FAERS Safety Report 13825934 (Version 4)
Quarter: 2017Q3

REPORT INFORMATION
  Report Type: Spontaneous
  Country: US (occurrence: US)
  Receive Date: 20170802
  Receipt Date: 20170913
  Transmission Date: 20171127
  Serious: No
  Sender: FDA-Public Use
  Company Number: US-ASTRAZENECA-2017SE78355

PATIENT
  Age: 73 Year
  Sex: Female
  Weight: 102.5 kg

DRUGS (6)
  1. LISINOPRIL. [Suspect]
     Active Substance: LISINOPRIL
     Indication: BLOOD PRESSURE ABNORMAL
     Route: 048
  2. SIMVASTATIN. [Concomitant]
     Active Substance: SIMVASTATIN
     Indication: BLOOD CHOLESTEROL ABNORMAL
     Route: 048
  3. BYDUREON [Suspect]
     Active Substance: EXENATIDE
     Indication: TYPE 2 DIABETES MELLITUS
     Route: 058
     Dates: start: 2013
  4. LEVOTHYROXINE. [Concomitant]
     Active Substance: LEVOTHYROXINE
     Indication: THYROID DISORDER
  5. FLUTICIASON [Concomitant]
     Indication: MULTIPLE ALLERGIES
  6. ALLERGY RELIEF [Concomitant]
     Indication: MULTIPLE ALLERGIES

REACTIONS (5)
  - Injection site nodule [Recovered/Resolved]
  - Product quality issue [Unknown]
  - Weight increased [Not Recovered/Not Resolved]
  - Underdose [Recovered/Resolved]
  - Incorrect disposal of product [Recovered/Resolved]

NARRATIVE: CASE EVENT DATE: 2017
